FAERS Safety Report 5369351-0 (Version None)
Quarter: 2007Q2

REPORT INFORMATION
  Report Type: 
  Country: None (occurrence: None)
  Receive Date: 20070620
  Receipt Date: 20070605
  Transmission Date: 20071010
  Serious: No
  Sender: FDA-Public Use
  Company Number: 2007P1000274

PATIENT
  Age: 51 Year
  Sex: Male

DRUGS (5)
  1. BUSULFAN (BUSULFAN) [Suspect]
     Indication: STEM CELL TRANSPLANT
     Dosage: IV
     Route: 042
  2. CAMPATH [Suspect]
     Dosage: IV
     Route: 042
  3. FLUDARABINE PHOSPHATE [Suspect]
     Indication: STEM CELL TRANSPLANT
     Dosage: IV
     Route: 042
  4. LANSOPRAZOLE [Concomitant]
  5. PENICILLIN V /00001801/ [Concomitant]

REACTIONS (2)
  - HEPATOBILIARY DISEASE [None]
  - SARCOIDOSIS [None]
